FAERS Safety Report 24566345 (Version 2)
Quarter: 2024Q4

REPORT INFORMATION
  Report Type: Report from Study
  Country: CA (occurrence: CA)
  Receive Date: 20241030
  Receipt Date: 20241107
  Transmission Date: 20250114
  Serious: Yes (Other)
  Sender: JOHNSON AND JOHNSON
  Company Number: CA-JNJFOC-20241068202

PATIENT
  Age: 58 Year
  Sex: Female

DRUGS (1)
  1. REMICADE [Suspect]
     Active Substance: INFLIXIMAB
     Indication: Crohn^s disease
     Dosage: THE PATIENT RECEIVED 134TH INFUSION OF REMICADE WITH THE DOSE OF 5MG/KG ON 30-OCT-2024.
     Route: 041

REACTIONS (6)
  - Ear swelling [Recovered/Resolved]
  - Ear pain [Not Recovered/Not Resolved]
  - Erythema [Recovered/Resolved]
  - Swelling of eyelid [Not Recovered/Not Resolved]
  - Tinnitus [Not Recovered/Not Resolved]
  - Sinus congestion [Recovered/Resolved]

NARRATIVE: CASE EVENT DATE: 20240918
